FAERS Safety Report 9799449 (Version 6)
Quarter: 2014Q2

REPORT INFORMATION
  Report Type: Report from Study
  Country: US (occurrence: US)
  Receive Date: 20140106
  Receipt Date: 20140617
  Transmission Date: 20141212
  Serious: Yes (Hospitalization, Other)
  Sender: FDA-Public Use
  Company Number: US-ACTELION-A-US2013-93111

PATIENT
  Age: 17 Year
  Sex: Male

DRUGS (23)
  1. TRACLEER [Suspect]
     Indication: PULMONARY ARTERIAL HYPERTENSION
     Dosage: 125 MG, BID
     Route: 048
     Dates: start: 201102
  2. TRACLEER [Suspect]
     Dosage: 31.25 MG, QD
     Route: 048
     Dates: start: 200311, end: 201102
  3. REMODULIN [Suspect]
     Route: 042
  4. COUMADIN [Concomitant]
  5. OXYGEN [Concomitant]
     Route: 045
  6. REVATIO [Concomitant]
  7. FLOLAN [Concomitant]
  8. GLEEVAC [Concomitant]
  9. PANTOPRAZOLE [Concomitant]
  10. LASIX [Concomitant]
  11. ACETYLCYSTEINE [Concomitant]
  12. AMOXICILLIN [Concomitant]
  13. ZOSYN [Concomitant]
  14. VANCOMYCIN [Concomitant]
  15. DEPLIN [Concomitant]
  16. DESLORATADINE [Concomitant]
  17. DONEPEZIL [Concomitant]
  18. SERTRALINE [Concomitant]
  19. SUCRALFATE [Concomitant]
  20. IRON [Concomitant]
  21. SACCHAROMYCES BOULARDII [Concomitant]
  22. MVI [Concomitant]
  23. LEVALBUTEROL [Concomitant]

REACTIONS (9)
  - Infusion [Unknown]
  - Gastrointestinal haemorrhage [Recovered/Resolved]
  - Angioplasty [Recovering/Resolving]
  - Fungal skin infection [Recovered/Resolved]
  - Catheter site pain [Unknown]
  - Medical device complication [Unknown]
  - Pyrexia [Unknown]
  - Malaise [Unknown]
  - Catheter site erythema [Recovered/Resolved]
